FAERS Safety Report 12724719 (Version 3)
Quarter: 2016Q4

REPORT INFORMATION
  Report Type: Report from Study
  Country: US (occurrence: US)
  Receive Date: 20160908
  Receipt Date: 20161011
  Transmission Date: 20170207
  Serious: Yes (Death, Hospitalization, Other)
  Sender: FDA-Public Use
  Company Number: US-GILEAD-2016-0232333

PATIENT
  Age: 75 Year
  Sex: Male
  Weight: 83.9 kg

DRUGS (14)
  1. AMBRISENTAN [Suspect]
     Active Substance: AMBRISENTAN
     Indication: PULMONARY ARTERIAL HYPERTENSION
     Dosage: 10 MG, UNK
     Route: 065
     Dates: start: 20110331
  2. ASMANEX [Concomitant]
     Active Substance: MOMETASONE FUROATE
  3. TORSEMIDE. [Concomitant]
     Active Substance: TORSEMIDE
  4. PRADAXA [Concomitant]
     Active Substance: DABIGATRAN ETEXILATE MESYLATE
  5. REMODULIN [Concomitant]
     Active Substance: TREPROSTINIL
  6. HYDROCODONE BITARTRATE AND ACETAMINOPHEN [Concomitant]
     Active Substance: ACETAMINOPHEN\HYDROCODONE BITARTRATE
  7. ADCIRCA [Concomitant]
     Active Substance: TADALAFIL
  8. KLOR-CON [Concomitant]
     Active Substance: POTASSIUM CHLORIDE
  9. DIGOXIN. [Concomitant]
     Active Substance: DIGOXIN
  10. FISH OIL [Concomitant]
     Active Substance: FISH OIL
  11. SPIRONOLACTONE. [Concomitant]
     Active Substance: SPIRONOLACTONE
  12. TOPROL XL [Concomitant]
     Active Substance: METOPROLOL SUCCINATE
  13. WELCHOL [Concomitant]
     Active Substance: COLESEVELAM HYDROCHLORIDE
  14. AMBRISENTAN [Suspect]
     Active Substance: AMBRISENTAN
     Dosage: 10 MG, QD
     Route: 048
     Dates: start: 20160217

REACTIONS (8)
  - Sepsis [Fatal]
  - Hypophagia [Unknown]
  - Lethargy [Unknown]
  - Pneumonia aspiration [Unknown]
  - Escherichia urinary tract infection [Unknown]
  - Acute respiratory failure [Fatal]
  - Confusional state [Unknown]
  - Fall [Unknown]

NARRATIVE: CASE EVENT DATE: 20160820
